FAERS Safety Report 6317774-5 (Version None)
Quarter: 2009Q3

REPORT INFORMATION
  Report Type: 
  Country: None (occurrence: None)
  Receive Date: 20090821
  Receipt Date: 20090811
  Transmission Date: 20100115
  Serious: Yes (Hospitalization)
  Sender: FDA-Public Use
  Company Number: DE-ABBOTT-09P-062-0590535-00

PATIENT
  Sex: Male
  Weight: 67 kg

DRUGS (6)
  1. KALETRA [Suspect]
     Indication: HIV INFECTION
     Dosage: 2X2
     Route: 048
     Dates: start: 20070917
  2. TRUVADA [Concomitant]
     Indication: HIV INFECTION
     Dosage: 1X1
     Route: 048
     Dates: start: 20070917
  3. ALLOPURINOL [Concomitant]
     Indication: DRUG USE FOR UNKNOWN INDICATION
  4. KALINOR [Concomitant]
     Indication: DRUG USE FOR UNKNOWN INDICATION
  5. CARBAMAZEPINE [Concomitant]
     Indication: DRUG USE FOR UNKNOWN INDICATION
  6. SEMPERA [Concomitant]
     Indication: DRUG USE FOR UNKNOWN INDICATION
     Dosage: 100

REACTIONS (15)
  - ALCOHOL WITHDRAWAL SYNDROME [None]
  - ALCOHOLISM [None]
  - ANXIETY [None]
  - BINOCULAR EYE MOVEMENT DISORDER [None]
  - DEPRESSION [None]
  - DIARRHOEA [None]
  - DISTURBANCE IN ATTENTION [None]
  - ECZEMA [None]
  - EPILEPSY [None]
  - HYPOKALAEMIA [None]
  - INAPPROPRIATE SCHEDULE OF DRUG ADMINISTRATION [None]
  - LIPASE INCREASED [None]
  - PANIC ATTACK [None]
  - PRURITUS [None]
  - RASH PUSTULAR [None]
